FAERS Safety Report 15499443 (Version 1)
Quarter: 2018Q4

REPORT INFORMATION
  Report Type: Spontaneous
  Country: US (occurrence: US)
  Receive Date: 20181009
  Receipt Date: 20181009
  Transmission Date: 20190205
  Serious: No
  Sender: FDA-Public Use
  Company Number: None

PATIENT
  Age: 15 Year

DRUGS (1)
  1. AFINITOR [Suspect]
     Active Substance: EVEROLIMUS
     Route: 048
     Dates: start: 201809

REACTIONS (4)
  - Micturition disorder [None]
  - Acne [None]
  - Fungal infection [None]
  - Urinary tract infection fungal [None]

NARRATIVE: CASE EVENT DATE: 20180917
